FAERS Safety Report 24356843 (Version 1)
Quarter: 2024Q3

REPORT INFORMATION
  Report Type: Spontaneous
  Country: US (occurrence: US)
  Receive Date: 20240924
  Receipt Date: 20240924
  Transmission Date: 20241017
  Serious: No
  Sender: CELLTRION
  Company Number: US-CELLTRION INC.-2023US018220

PATIENT

DRUGS (14)
  1. INFLECTRA [Suspect]
     Active Substance: INFLIXIMAB-DYYB
     Indication: Hidradenitis
     Dosage: UNK (SHE HAS SUPPOSED TO TAKE EVERY 6 WEEKS)
     Route: 065
     Dates: start: 20220418, end: 20230501
  2. WARFARIN SODIUM [Concomitant]
     Active Substance: WARFARIN SODIUM
     Indication: Thrombosis
  3. LISINOPRIL [Concomitant]
     Active Substance: LISINOPRIL
  4. FUROSEMIDE [Concomitant]
     Active Substance: FUROSEMIDE
  5. GLIMEPIRIDE [Concomitant]
     Active Substance: GLIMEPIRIDE
     Indication: Diabetes mellitus
  6. INSULIN NOS [Concomitant]
     Active Substance: INSULIN NOS
     Indication: Diabetes mellitus
  7. NORETHINDRONE [Concomitant]
     Active Substance: NORETHINDRONE
     Indication: Uterine disorder
  8. PROGESTERONE [Concomitant]
     Active Substance: PROGESTERONE
     Indication: Uterine disorder
  9. HYDROCODONE [Concomitant]
     Active Substance: HYDROCODONE
  10. OXYCONTIN [Concomitant]
     Active Substance: OXYCODONE HYDROCHLORIDE
  11. TRIAMCINOLONE [Concomitant]
     Active Substance: TRIAMCINOLONE
     Indication: Hidradenitis
  12. VITAMINS NOS [Concomitant]
     Active Substance: VITAMINS
  13. LISINOPRIL [Concomitant]
     Active Substance: LISINOPRIL
  14. NORETHINDRONE ACETATE [Concomitant]
     Active Substance: NORETHINDRONE ACETATE

REACTIONS (4)
  - Symptom recurrence [Unknown]
  - Insurance issue [Unknown]
  - Therapy interrupted [Unknown]
  - Intentional product use issue [Unknown]
